FAERS Safety Report 6668728-0 (Version None)
Quarter: 2010Q2

REPORT INFORMATION
  Report Type: 
  Country: None (occurrence: None)
  Receive Date: 20100401
  Receipt Date: 20100323
  Transmission Date: 20101027
  Serious: Yes (Other)
  Sender: FDA-Public Use
  Company Number: JP-2010-0500

PATIENT
  Age: 68 Year
  Sex: Female

DRUGS (3)
  1. NAVELBINE [Suspect]
     Indication: BREAST CANCER
     Dosage: 36.5 MG UNK IV
     Route: 042
     Dates: start: 20091024
  2. HERCEPTIN [Suspect]
     Indication: BREAST CANCER
     Dosage: 100 MG 1 X WK IV
     Route: 042
     Dates: start: 20091027
  3. LANSOPRAZOLE [Concomitant]

REACTIONS (4)
  - PAIN [None]
  - PARAESTHESIA [None]
  - SKIN EXFOLIATION [None]
  - SKIN FISSURES [None]
